FAERS Safety Report 8094755-5 (Version None)
Quarter: 2012Q1

REPORT INFORMATION
  Report Type: 
  Country: None (occurrence: None)
  Receive Date: 20120129
  Receipt Date: 20111212
  Transmission Date: 20120608
  Serious: No
  Sender: FDA-Public Use
  Company Number: US-ABBOTT-11P-163-0882338-00

PATIENT
  Sex: Female
  Weight: 54.48 kg

DRUGS (6)
  1. HUMIRA [Suspect]
     Indication: CROHN'S DISEASE
     Dates: start: 20090101, end: 20100101
  2. UNKNOWN MEDICATION [Concomitant]
     Indication: HYPERTENSION
  3. FIBER [Concomitant]
     Indication: PRODUCT USED FOR UNKNOWN INDICATION
  4. LOMOTIL [Concomitant]
     Indication: DIARRHOEA
  5. ACTONEL [Concomitant]
     Indication: OSTEOPOROSIS
  6. HUMIRA [Suspect]
     Dates: start: 20100101

REACTIONS (11)
  - SNEEZING [None]
  - RHINORRHOEA [None]
  - ASTHENIA [None]
  - CROHN'S DISEASE [None]
  - COUGH [None]
  - UPPER RESPIRATORY TRACT CONGESTION [None]
  - INFLUENZA [None]
  - NASOPHARYNGITIS [None]
  - PAIN [None]
  - DIZZINESS [None]
  - CHILLS [None]
